FAERS Safety Report 20945513 (Version 5)
Quarter: 2024Q1

REPORT INFORMATION
  Report Type: Spontaneous
  Country: IN (occurrence: IN)
  Receive Date: 20220610
  Receipt Date: 20240208
  Transmission Date: 20240409
  Serious: Yes (Other)
  Sender: FDA-Public Use
  Company Number: IN-PFIZER INC-2018046711

PATIENT
  Age: 49 Year
  Sex: Female
  Weight: 71 kg

DRUGS (24)
  1. CRIZOTINIB [Suspect]
     Active Substance: CRIZOTINIB
     Indication: Lung adenocarcinoma stage IV
     Dosage: 250 MG, 2X/DAY
     Route: 048
     Dates: start: 20180115
  2. CRIZOTINIB [Suspect]
     Active Substance: CRIZOTINIB
     Dosage: 250 MG, 2X/DAY
     Route: 048
     Dates: start: 20190304, end: 2019
  3. CRIZOTINIB [Suspect]
     Active Substance: CRIZOTINIB
     Dosage: 200 MG, 2X/DAY
     Route: 048
     Dates: start: 2019
  4. CRIZOTINIB [Suspect]
     Active Substance: CRIZOTINIB
     Dosage: 8AM AND 8PM
     Route: 048
     Dates: start: 20200415
  5. CRIZOTINIB [Suspect]
     Active Substance: CRIZOTINIB
     Dosage: 8:00 AM AND 8:00 PM
     Route: 048
     Dates: start: 20200818
  6. CRIZOTINIB [Suspect]
     Active Substance: CRIZOTINIB
     Dosage: 8:00 AM AND 8:00 PM
     Route: 048
     Dates: start: 20201222
  7. CRIZOTINIB [Suspect]
     Active Substance: CRIZOTINIB
     Dosage: 8:00 AM AND 8:00 PM
     Route: 048
     Dates: start: 20210302
  8. CRIZOTINIB [Suspect]
     Active Substance: CRIZOTINIB
     Dosage: 8:00 AM AND 8:00 PM
     Dates: start: 20230719
  9. CRIZOTINIB [Suspect]
     Active Substance: CRIZOTINIB
     Dosage: 250 MG, 2X/DAY, 8:00 AM AND 8:00 PM
     Route: 048
  10. DUPHALAC [Concomitant]
     Active Substance: LACTULOSE
     Indication: Constipation
     Dosage: 450 ML, 1X/DAY, (AT BEDTIME SOS IN CASE OF CONSTIPATION)
     Dates: start: 20190304
  11. DUPHALAC [Concomitant]
     Active Substance: LACTULOSE
     Dosage: 10 ML, 1X/DAY (AT BEDTIME SOS IN CASE OF CONSTIPATION)
     Dates: start: 20200415
  12. DUPHALAC [Concomitant]
     Active Substance: LACTULOSE
     Dosage: 10 ML, 1X/DAY (AT BEDTIME SOS IN CASE OF CONSTIPATION)
     Dates: start: 20200818
  13. DUPHALAC [Concomitant]
     Active Substance: LACTULOSE
     Dosage: 10 ML, 1X/DAY (AT BEDTIME SOS IN CASE OF CONSTIPATION)
     Dates: start: 20201222
  14. DUPHALAC [Concomitant]
     Active Substance: LACTULOSE
     Dosage: 10 ML, 1X/DAY (AT BEDTIME SOS IN CASE OF CONSTIPATION)
     Dates: start: 20210302
  15. DUPHALAC [Concomitant]
     Active Substance: LACTULOSE
     Dosage: AT BEDTIME SOS IN CASE OF CONSTIPATION
     Dates: start: 20230719
  16. PAN [Concomitant]
     Dosage: 40 MG, 1X/DAY
     Dates: start: 20190403
  17. PAN [Concomitant]
     Dosage: 40 MG, 1X/DAY
     Dates: start: 20200415
  18. PAN [Concomitant]
     Dosage: 40 MG, 1X/DAY
     Dates: start: 20200818
  19. PAN [Concomitant]
     Dosage: 40 MG, 1X/DAY
     Dates: start: 20201222
  20. PAN [Concomitant]
     Dosage: 40 MG, 1X/DAY
     Dates: start: 20210302
  21. PAN [Concomitant]
     Dosage: 40 MG, 1X/DAY
     Dates: start: 20230719
  22. TAZLOC-40 [Concomitant]
     Indication: Hypertension
     Dosage: UNK
  23. COVID-19 VACCINE [Concomitant]
     Dosage: (DOSE 1)
  24. COVID-19 VACCINE [Concomitant]
     Dosage: (DOSE 2)

REACTIONS (18)
  - Interstitial lung disease [Unknown]
  - Electrocardiogram QT prolonged [Unknown]
  - Body mass index increased [Unknown]
  - Peripheral swelling [Unknown]
  - Hepatic cyst [Unknown]
  - Depression [Not Recovered/Not Resolved]
  - Blood pressure decreased [Unknown]
  - COVID-19 [Recovered/Resolved]
  - Pain [Unknown]
  - Neoplasm recurrence [Unknown]
  - Vomiting [Unknown]
  - Tension [Not Recovered/Not Resolved]
  - Blood pressure increased [Unknown]
  - Atelectasis [Unknown]
  - Product use issue [Unknown]
  - Sinus bradycardia [Unknown]
  - Weight increased [Unknown]
  - Body temperature abnormal [Unknown]

NARRATIVE: CASE EVENT DATE: 20200801
